FAERS Safety Report 26019596 (Version 1)
Quarter: 2025Q4

REPORT INFORMATION
  Report Type: Spontaneous
  Country: US (occurrence: None)
  Receive Date: 20251107
  Receipt Date: 20251107
  Transmission Date: 20260117
  Serious: Yes (Hospitalization)
  Sender: FDA-CTU
  Company Number: None

PATIENT
  Age: 80 Year
  Sex: Female

DRUGS (3)
  1. TYMLOS [Suspect]
     Active Substance: ABALOPARATIDE
     Indication: Osteoporosis
     Dosage: FREQUENCY : DAILY;?
     Route: 058
     Dates: start: 20240124
  2. LISINOPRIL [Suspect]
     Active Substance: LISINOPRIL
  3. AMIODARONE [Suspect]
     Active Substance: AMIODARONE

REACTIONS (2)
  - Urinary tract infection [None]
  - Atrial fibrillation [None]

NARRATIVE: CASE EVENT DATE: 20250902
